FAERS Safety Report 15367655 (Version 3)
Quarter: 2018Q4

REPORT INFORMATION
  Report Type: Spontaneous
  Country: DE (occurrence: DE)
  Receive Date: 20180910
  Receipt Date: 20181009
  Transmission Date: 20190204
  Serious: Yes (Life-Threatening)
  Sender: FDA-Public Use
  Company Number: DE-PFIZER INC-2018362955

PATIENT
  Age: 55 Year
  Sex: Female

DRUGS (6)
  1. LAMICTAL [Suspect]
     Active Substance: LAMOTRIGINE
     Indication: ATTENTION DEFICIT/HYPERACTIVITY DISORDER
     Dosage: 125 MG, UNK
     Route: 048
  2. VENLAFAXINE HCL [Suspect]
     Active Substance: VENLAFAXINE HYDROCHLORIDE
     Indication: ATTENTION DEFICIT/HYPERACTIVITY DISORDER
     Dosage: 225 MG, UNK
     Dates: start: 20050927
  3. VALDOXAN [Suspect]
     Active Substance: AGOMELATINE
     Indication: ATTENTION DEFICIT/HYPERACTIVITY DISORDER
     Dosage: 25 MG, UNK
     Route: 048
     Dates: start: 20180115
  4. LAMICTAL [Suspect]
     Active Substance: LAMOTRIGINE
     Indication: BIPOLAR II DISORDER
     Dosage: 100 MG, UNK
     Route: 048
     Dates: start: 20150801
  5. VENLAFAXINE HCL [Suspect]
     Active Substance: VENLAFAXINE HYDROCHLORIDE
     Indication: BIPOLAR II DISORDER
  6. VALDOXAN [Suspect]
     Active Substance: AGOMELATINE
     Indication: BIPOLAR II DISORDER

REACTIONS (2)
  - Lymphocytosis [Not Recovered/Not Resolved]
  - Leukocytosis [Unknown]

NARRATIVE: CASE EVENT DATE: 201805
